FAERS Safety Report 18190457 (Version 2)
Quarter: 2020Q3

REPORT INFORMATION
  Report Type: Report from Study
  Country: US (occurrence: US)
  Receive Date: 20200825
  Receipt Date: 20200925
  Transmission Date: 20201103
  Serious: Yes (Other)
  Sender: FDA-Public Use
  Company Number: US-BIOGEN-2020BI00913555

PATIENT
  Age: 23 Year
  Sex: Female

DRUGS (1)
  1. TYSABRI [Suspect]
     Active Substance: NATALIZUMAB
     Indication: MULTIPLE SCLEROSIS
     Route: 065
     Dates: start: 20200501, end: 20200730

REACTIONS (4)
  - Vomiting [Unknown]
  - Disturbance in attention [Unknown]
  - Schizophrenia [Unknown]
  - Malaise [Unknown]

NARRATIVE: CASE EVENT DATE: 20200730
